FAERS Safety Report 24440173 (Version 1)
Quarter: 2024Q4

REPORT INFORMATION
  Report Type: Spontaneous
  Country: US (occurrence: US)
  Receive Date: 20241016
  Receipt Date: 20241016
  Transmission Date: 20250114
  Serious: Yes (Other)
  Sender: CHEPLAPHARM
  Company Number: US-ROCHE-10000097213

PATIENT
  Age: 46 Year
  Sex: Female

DRUGS (6)
  1. CLONAZEPAM [Suspect]
     Active Substance: CLONAZEPAM
     Indication: Product used for unknown indication
     Route: 048
  2. OCREVUS [Suspect]
     Active Substance: OCRELIZUMAB
     Indication: Multiple sclerosis
     Route: 042
  3. DIAZEPAM [Concomitant]
     Active Substance: DIAZEPAM
  4. ESTRADIOL [Concomitant]
     Active Substance: ESTRADIOL
  5. SYNTHROID [Concomitant]
     Active Substance: LEVOTHYROXINE SODIUM
  6. MODAFINIL [Concomitant]
     Active Substance: MODAFINIL

REACTIONS (7)
  - Optic neuritis [Unknown]
  - Vertigo [Unknown]
  - Functional gastrointestinal disorder [Unknown]
  - Arthralgia [Unknown]
  - Cognitive disorder [Unknown]
  - Fatigue [Unknown]
  - Bladder dysfunction [Unknown]
